FAERS Safety Report 8058798-X (Version None)
Quarter: 2012Q1

REPORT INFORMATION
  Report Type: 
  Country: None (occurrence: None)
  Receive Date: 20120120
  Receipt Date: 20120110
  Transmission Date: 20120608
  Serious: Yes (Hospitalization, Other)
  Sender: FDA-Public Use
  Company Number: US-BAYER-2011-040648

PATIENT
  Age: 38 Year
  Sex: Female
  Weight: 72.562 kg

DRUGS (12)
  1. YASMIN [Suspect]
     Indication: PREMENSTRUAL SYNDROME
     Dosage: UNK
     Dates: start: 20010101, end: 20090911
  2. ALPRAZOLAM [Concomitant]
     Dosage: 1 MG, PRN
     Route: 048
  3. CYMBALTA [Concomitant]
     Dosage: 20 MG, QD
     Route: 048
  4. IBUPROFEN (ADVIL) [Concomitant]
     Dosage: UNK
     Route: 048
     Dates: start: 19900101, end: 20111209
  5. NORVASC [Concomitant]
     Dosage: 5 MG, QD
     Route: 048
     Dates: start: 20050101, end: 20111209
  6. SEROQUEL [Concomitant]
     Dosage: 150 MG, HS
     Route: 048
  7. YASMIN [Suspect]
  8. MOTRIN [Concomitant]
     Dosage: UNK
     Route: 048
     Dates: start: 19900101, end: 20111209
  9. POTASSIUM CHLORIDE [Concomitant]
     Dosage: UNK UNK, QD
     Route: 048
     Dates: start: 20050101, end: 20111201
  10. VASOTEC [Concomitant]
     Dosage: 5 MG, QD
     Route: 048
  11. TRAZODONE HCL [Concomitant]
     Dosage: 150 MG, HS
     Route: 048
  12. AMBIEN [Concomitant]
     Dosage: 5 MG, HS
     Route: 048

REACTIONS (5)
  - CHOLECYSTITIS CHRONIC [None]
  - CEREBROVASCULAR ACCIDENT [None]
  - CONVULSION [None]
  - GALLBLADDER DISORDER [None]
  - INJURY [None]
